FAERS Safety Report 13796985 (Version 1)
Quarter: 2017Q3

REPORT INFORMATION
  Report Type: Spontaneous
  Country: JP (occurrence: JP)
  Receive Date: 20170726
  Receipt Date: 20170726
  Transmission Date: 20171127
  Serious: Yes (Other)
  Sender: FDA-Public Use
  Company Number: JP-MYLANLABS-2017M1044518

PATIENT

DRUGS (6)
  1. EPOPROSTENOL. [Suspect]
     Active Substance: EPOPROSTENOL
     Indication: PULMONARY ARTERIAL HYPERTENSION
     Dosage: INITIAL DOSE WAS UNKNOWN. LATER INCREASED TO 9 NG/KG/MIN
     Route: 042
  2. LOW MOLECULAR WEIGHT HEPARIN [Suspect]
     Active Substance: UNSPECIFIED INGREDIENT
     Indication: PRODUCT USED FOR UNKNOWN INDICATION
  3. ULINASTATIN [Suspect]
     Active Substance: ULINASTATIN
     Indication: THREATENED LABOUR
     Route: 065
  4. SILDENAFIL. [Suspect]
     Active Substance: SILDENAFIL
     Indication: PULMONARY ARTERIAL HYPERTENSION
     Dosage: INITIALLY, SHE WAS TAKING 60 MG/DAY; HOWEVER, DOSE WAS UNKNOWN AT THE TIME OF PREGNANCY
     Route: 065
  5. AMBRISENTAN [Suspect]
     Active Substance: AMBRISENTAN
     Indication: PULMONARY ARTERIAL HYPERTENSION
     Dosage: INITIALLY, SHE RECEIVED 2.5MG/D; HOWEVER, DURING PREGNANCY DOSE WAS DECREASED AND FINALLY STOPPED
     Route: 065
  6. MAGNESIUM SULFATE. [Suspect]
     Active Substance: MAGNESIUM SULFATE
     Indication: THREATENED LABOUR
     Route: 065

REACTIONS (2)
  - Threatened labour [Recovered/Resolved]
  - Maternal exposure during pregnancy [Recovered/Resolved]
